FAERS Safety Report 25216159 (Version 1)
Quarter: 2025Q2

REPORT INFORMATION
  Report Type: Spontaneous
  Country: US (occurrence: US)
  Receive Date: 20250418
  Receipt Date: 20250418
  Transmission Date: 20250717
  Serious: No
  Sender: ABBVIE
  Company Number: US-ABBVIE-6230655

PATIENT
  Sex: Female

DRUGS (1)
  1. RISANKIZUMAB [Suspect]
     Active Substance: RISANKIZUMAB
     Indication: Psoriatic arthropathy
     Route: 058

REACTIONS (2)
  - Symptom recurrence [Unknown]
  - Skin plaque [Unknown]

NARRATIVE: CASE EVENT DATE: 20250301
